FAERS Safety Report 9376707 (Version 1)
Quarter: 2013Q3

REPORT INFORMATION
  Report Type: Report from Study
  Country: CA (occurrence: CA)
  Receive Date: 20130701
  Receipt Date: 20130701
  Transmission Date: 20140515
  Serious: Yes (Other)
  Sender: FDA-Public Use
  Company Number: CA-JNJFOC-20130617701

PATIENT
  Age: 37 Year
  Sex: Male
  Weight: 92.7 kg

DRUGS (6)
  1. REMICADE [Suspect]
     Indication: COLITIS ULCERATIVE
     Route: 042
  2. SALOFALK [Concomitant]
     Route: 065
  3. INSULIN ASPART [Concomitant]
     Route: 065
  4. NPH INSULIN [Concomitant]
     Route: 065
  5. IMURAN [Concomitant]
     Route: 065
  6. FOLIC ACID [Concomitant]
     Route: 065

REACTIONS (2)
  - Skin mass [Not Recovered/Not Resolved]
  - Dry skin [Not Recovered/Not Resolved]
